FAERS Safety Report 4439537-8 (Version None)
Quarter: 2004Q3

REPORT INFORMATION
  Report Type: 
  Country: None (occurrence: None)
  Receive Date: 20040830
  Receipt Date: 20040813
  Transmission Date: 20050211
  Serious: No
  Sender: FDA-Public Use
  Company Number: 2004AP03375

PATIENT
  Age: 71 Year
  Sex: Male

DRUGS (3)
  1. CASODEX [Suspect]
     Indication: PROSTATE CANCER
     Dosage: 80 MG DAILY PO
     Route: 048
     Dates: start: 20040330, end: 20040608
  2. ZOLADEX [Suspect]
     Indication: PROSTATE CANCER
     Dosage: 10.8 MG SQ
     Route: 058
     Dates: start: 20040413, end: 20040608
  3. WARFARIN SODIUM [Concomitant]

REACTIONS (2)
  - INTERSTITIAL LUNG DISEASE [None]
  - RESTRICTIVE PULMONARY DISEASE [None]
